FAERS Safety Report 7025585-0 (Version None)
Quarter: 2010Q4

REPORT INFORMATION
  Report Type: 
  Country: None (occurrence: None)
  Receive Date: 20101003
  Receipt Date: 20100927
  Transmission Date: 20110411
  Serious: Yes (Other)
  Sender: FDA-Public Use
  Company Number: PHHY2010CO64269

PATIENT
  Sex: Female

DRUGS (1)
  1. ACLASTA [Suspect]
     Indication: OSTEOPOROSIS
     Dosage: 5 MG/100ML 1INFUSION PER YEAR
     Dates: start: 20100626

REACTIONS (4)
  - APHONIA [None]
  - INFLUENZA [None]
  - MALAISE [None]
  - PHARYNGITIS [None]
